FAERS Safety Report 11405708 (Version 4)
Quarter: 2017Q2

REPORT INFORMATION
  Report Type: Report from Study
  Country: US (occurrence: US)
  Receive Date: 20150821
  Receipt Date: 20170516
  Transmission Date: 20170829
  Serious: Yes (Hospitalization)
  Sender: FDA-Public Use
  Company Number: US-JNJFOC-20150813985

PATIENT
  Age: 63 Year
  Sex: Male

DRUGS (20)
  1. IMBRUVICA [Suspect]
     Active Substance: IBRUTINIB
     Indication: CHRONIC LYMPHOCYTIC LEUKAEMIA
     Route: 048
     Dates: start: 201506, end: 2015
  2. IMBRUVICA [Suspect]
     Active Substance: IBRUTINIB
     Indication: LYMPHOMA
     Route: 048
  3. IMBRUVICA [Suspect]
     Active Substance: IBRUTINIB
     Indication: LYMPHOMA
     Route: 048
     Dates: start: 2015
  4. LOVENOX [Concomitant]
     Active Substance: ENOXAPARIN SODIUM
  5. TOPROL XL [Concomitant]
     Active Substance: METOPROLOL SUCCINATE
  6. COLACE [Concomitant]
     Active Substance: DOCUSATE SODIUM
  7. FLOMAX [Concomitant]
     Active Substance: TAMSULOSIN HYDROCHLORIDE
  8. IMBRUVICA [Suspect]
     Active Substance: IBRUTINIB
     Indication: CHRONIC LYMPHOCYTIC LEUKAEMIA
     Route: 048
  9. IMBRUVICA [Suspect]
     Active Substance: IBRUTINIB
     Indication: CHRONIC LYMPHOCYTIC LEUKAEMIA
     Route: 048
     Dates: start: 2015
  10. VERAPAMIL [Concomitant]
     Active Substance: VERAPAMIL HYDROCHLORIDE
  11. IRON [Concomitant]
     Active Substance: IRON
  12. ALBUTEROL. [Concomitant]
     Active Substance: ALBUTEROL
  13. ALLOPURINOL. [Concomitant]
     Active Substance: ALLOPURINOL
  14. CLARITIN [Concomitant]
     Active Substance: LORATADINE
  15. IRON [Concomitant]
     Active Substance: IRON
     Dates: start: 201511
  16. IMBRUVICA [Suspect]
     Active Substance: IBRUTINIB
     Indication: LYMPHOMA
     Route: 048
     Dates: start: 201506, end: 2015
  17. FLONASE [Concomitant]
     Active Substance: FLUTICASONE PROPIONATE
  18. HCTZ [Concomitant]
     Active Substance: HYDROCHLOROTHIAZIDE
  19. COUMADIN [Concomitant]
     Active Substance: WARFARIN SODIUM
  20. OMEPRAZOLE. [Concomitant]
     Active Substance: OMEPRAZOLE

REACTIONS (7)
  - Anaemia [Recovered/Resolved]
  - Tooth discolouration [Not Recovered/Not Resolved]
  - Gastric polyps [Recovered/Resolved]
  - Gastric ulcer haemorrhage [Unknown]
  - Onychoclasis [Unknown]
  - Fatigue [Unknown]
  - Off label use [Unknown]

NARRATIVE: CASE EVENT DATE: 201506
